FAERS Safety Report 20757104 (Version 2)
Quarter: 2022Q2

REPORT INFORMATION
  Report Type: Spontaneous
  Country: US (occurrence: None)
  Receive Date: 20220427
  Receipt Date: 20220511
  Transmission Date: 20220721
  Serious: No
  Sender: FDA-Public Use
  Company Number: 2022A130530

PATIENT
  Age: 23181 Day
  Sex: Male
  Weight: 90.7 kg

DRUGS (1)
  1. BYDUREON BCISE [Suspect]
     Active Substance: EXENATIDE
     Indication: Type 2 diabetes mellitus
     Route: 058
     Dates: start: 2019

REACTIONS (7)
  - Injection site mass [Not Recovered/Not Resolved]
  - Contusion [Recovered/Resolved]
  - Hypoacusis [Not Recovered/Not Resolved]
  - Device leakage [Unknown]
  - Device use issue [Unknown]
  - Needle issue [Unknown]
  - Device malfunction [Unknown]

NARRATIVE: CASE EVENT DATE: 20220222
